FAERS Safety Report 25418638 (Version 1)
Quarter: 2025Q2

REPORT INFORMATION
  Report Type: Spontaneous
  Country: ID (occurrence: ID)
  Receive Date: 20250610
  Receipt Date: 20250610
  Transmission Date: 20250717
  Serious: Yes (Other)
  Sender: NOVAST LABORATORIES LTD
  Company Number: ID-NOVAST LABORATORIES INC.-2025NOV000235

PATIENT
  Age: 36 Year
  Sex: Female

DRUGS (3)
  1. ACETAZOLAMIDE [Suspect]
     Active Substance: ACETAZOLAMIDE
     Indication: Glaucoma
     Route: 065
  2. TIMOLOL MALEATE [Concomitant]
     Active Substance: TIMOLOL MALEATE
     Indication: Glaucoma
     Route: 065
  3. GLYCERIN [Concomitant]
     Active Substance: GLYCERIN
     Indication: Glaucoma
     Route: 065

REACTIONS (1)
  - Angle closure glaucoma [Recovered/Resolved]
